FAERS Safety Report 5931054-9 (Version None)
Quarter: 2008Q4

REPORT INFORMATION
  Report Type: 
  Country: None (occurrence: None)
  Receive Date: 20081022
  Receipt Date: 20080717
  Transmission Date: 20090506
  Serious: Yes (Death, Hospitalization)
  Sender: FDA-Public Use
  Company Number: CL000442008

PATIENT
  Age: 74 Year
  Sex: Female

DRUGS (18)
  1. CIPROFLOXACIN [Suspect]
     Indication: PYREXIA
     Dosage: 1500MG
     Dates: start: 20080307, end: 20080312
  2. RITUXIMAB [Suspect]
  3. ALLOPURINOL [Concomitant]
  4. ASPIRIN [Concomitant]
  5. BISOPROLOL FUMARATE [Concomitant]
  6. CALCICHEW [Concomitant]
  7. CYCLOPHOSPHAMIDE [Concomitant]
  8. DOXORUBICIN HCL [Concomitant]
  9. FOLIC ACID [Concomitant]
  10. LANSOPRAZOLE [Concomitant]
  11. MAXOLON [Concomitant]
  12. MS CONTIN [Concomitant]
  13. ACETAMINOPHEN [Concomitant]
  14. PREDNISOLONE [Concomitant]
  15. TEMAZEPAM [Concomitant]
  16. VALSARTAN [Concomitant]
  17. VINCRISTINE [Concomitant]
  18. ZOFRAN [Concomitant]

REACTIONS (4)
  - CONVULSION [None]
  - PYREXIA [None]
  - RENAL FAILURE [None]
  - UNRESPONSIVE TO STIMULI [None]
